FAERS Safety Report 15500379 (Version 1)
Quarter: 2018Q4

REPORT INFORMATION
  Report Type: Spontaneous
  Country: US (occurrence: US)
  Receive Date: 20181015
  Receipt Date: 20181015
  Transmission Date: 20190205
  Serious: No
  Sender: FDA-Public Use
  Company Number: US-BAYER-2018-178390

PATIENT
  Age: 13 Year
  Sex: Male

DRUGS (3)
  1. AFRIN NO DRIP ORIGINAL PUMP MIST [Concomitant]
     Active Substance: OXYMETAZOLINE HYDROCHLORIDE
     Dosage: UNK
  2. CLARITIN LIQUI-GELS [Suspect]
     Active Substance: LORATADINE
     Dosage: 2 DF, QD
     Route: 065
     Dates: start: 20180919
  3. CLARITIN LIQUI-GELS [Suspect]
     Active Substance: LORATADINE
     Dosage: 2 DF, QD
     Route: 065
     Dates: start: 20180920

REACTIONS (1)
  - Inappropriate schedule of product administration [Unknown]

NARRATIVE: CASE EVENT DATE: 20180920
